FAERS Safety Report 13478448 (Version 2)
Quarter: 2017Q2

REPORT INFORMATION
  Report Type: Report from Study
  Country: None (occurrence: NL)
  Receive Date: 20170424
  Receipt Date: 20170519
  Transmission Date: 20170830
  Serious: Yes (Life-Threatening)
  Sender: FDA-Public Use
  Company Number: NL-ABBVIE-17P-114-1949624-00

PATIENT
  Age: 61 Year
  Sex: Male
  Weight: 100 kg

DRUGS (12)
  1. ACENOCOUMAROL [Concomitant]
     Active Substance: ACENOCOUMAROL
     Indication: ARRHYTHMIA
     Dosage: DEPENDING ON BLOOD TEST
     Dates: start: 201508
  2. OXYCONTIN [Concomitant]
     Active Substance: OXYCODONE HYDROCHLORIDE
     Indication: LUNG NEOPLASM MALIGNANT
     Dates: start: 20170405
  3. METRONIDAZOLE. [Concomitant]
     Active Substance: METRONIDAZOLE
     Indication: ENDOCARDITIS
     Dates: start: 20120901, end: 20121013
  4. ROSUVASTATINE [Concomitant]
     Active Substance: ROSUVASTATIN
     Indication: HYPERCHOLESTEROLAEMIA
     Dates: start: 2005
  5. HUMIRA [Suspect]
     Active Substance: ADALIMUMAB
     Indication: PSORIASIS
     Route: 058
     Dates: start: 20090701, end: 20090701
  6. METOPROLOLTARTRATE [Concomitant]
     Indication: ARRHYTHMIA
     Dates: start: 20090607
  7. GENTAMICIN. [Concomitant]
     Active Substance: GENTAMICIN
     Indication: ENDOCARDITIS
     Dates: start: 20120901, end: 20121013
  8. HUMIRA [Suspect]
     Active Substance: ADALIMUMAB
     Route: 058
     Dates: end: 20090710
  9. USTEKINUMAB [Concomitant]
     Active Substance: USTEKINUMAB
     Indication: PSORIASIS
     Dosage: WEEK 0, WEEK 4 AND THAN EVERY 3 MONTHS
     Dates: start: 20091207
  10. OXYCONTIN ESCAPE [Concomitant]
     Indication: LUNG NEOPLASM MALIGNANT
     Dates: start: 20170405
  11. PENICILLIN [Concomitant]
     Active Substance: PENICILLIN
     Indication: ENDOCARDITIS
     Dosage: 2 MILLION UNITS
     Dates: start: 20120901, end: 20121013
  12. OXYCODONE HYDROCHLORIDE. [Concomitant]
     Active Substance: OXYCODONE HYDROCHLORIDE
     Indication: LUNG NEOPLASM MALIGNANT
     Dates: start: 20170405

REACTIONS (1)
  - Bronchial carcinoma [Not Recovered/Not Resolved]

NARRATIVE: CASE EVENT DATE: 20170414
